FAERS Safety Report 9916613 (Version 2)
Quarter: 2014Q1

REPORT INFORMATION
  Report Type: Spontaneous
  Country: CZ (occurrence: CZ)
  Receive Date: 20140221
  Receipt Date: 20140221
  Transmission Date: 20141002
  Serious: Yes (Other)
  Sender: FDA-Public Use
  Company Number: PHHY2014CZ015274

PATIENT
  Age: 35 Year
  Sex: Female

DRUGS (3)
  1. TRAMADOL [Suspect]
     Indication: TOOTHACHE
     Dosage: 1500- 2250 MG, UNK
  2. TRAMADOL [Suspect]
     Indication: HEADACHE
  3. TRAMADOL [Suspect]
     Indication: BACK PAIN

REACTIONS (3)
  - Eating disorder [Unknown]
  - Hallucination [Unknown]
  - Anxiety [Unknown]
